FAERS Safety Report 5922634-5 (Version None)
Quarter: 2008Q4

REPORT INFORMATION
  Report Type: 
  Country: None (occurrence: None)
  Receive Date: 20081017
  Receipt Date: 20081006
  Transmission Date: 20090506
  Serious: Yes (Hospitalization)
  Sender: FDA-Public Use
  Company Number: ES-JNJFOC-20080704409

PATIENT
  Sex: Female
  Weight: 87.7 kg

DRUGS (3)
  1. RISPERIDONE [Suspect]
     Route: 030
  2. RISPERIDONE [Suspect]
     Indication: SCHIZOPHRENIA
     Route: 030
  3. DIAZEPAM [Concomitant]

REACTIONS (1)
  - PSYCHOTIC DISORDER [None]
